FAERS Safety Report 19267393 (Version 1)
Quarter: 2021Q2

REPORT INFORMATION
  Report Type: Spontaneous
  Country: US (occurrence: US)
  Receive Date: 20210518
  Receipt Date: 20210518
  Transmission Date: 20210717
  Serious: No
  Sender: FDA-Public Use
  Company Number: US-BION-009369

PATIENT
  Sex: Male

DRUGS (1)
  1. BIONPHARMA^S IBUPROFEN CAPSULES 200 MG SOFTGELS [Suspect]
     Active Substance: IBUPROFEN
     Indication: PAIN
     Dosage: STRENGTH?200MG, 3 BOTTLES

REACTIONS (1)
  - Drug ineffective [Not Recovered/Not Resolved]
